FAERS Safety Report 8780815 (Version 2)
Quarter: 2012Q4

REPORT INFORMATION
  Report Type: 
  Country: CA (occurrence: CA)
  Receive Date: 20120913
  Receipt Date: 20121001
  Transmission Date: 20130627
  Serious: Yes (Hospitalization, Other)
  Sender: FDA-Public Use
  Company Number: CA-ELI_LILLY_AND_COMPANY-CA201209001852

PATIENT
  Age: 83 Year
  Sex: Male

DRUGS (6)
  1. FORTEO [Suspect]
     Indication: OSTEOPOROSIS
     Dosage: 20 ug, qd
     Route: 058
     Dates: start: 20120207, end: 20120830
  2. DILAUDID [Concomitant]
     Dosage: UNK, unknown
     Route: 065
  3. ACETAMINOPHEN [Concomitant]
  4. SENOKOT [Concomitant]
     Dosage: UNK, unknown
     Route: 065
  5. TRUSOPT [Concomitant]
     Dosage: UNK, unknown
     Route: 065
  6. SPIRIVA [Concomitant]
     Dosage: UNK, unknown
     Route: 065

REACTIONS (2)
  - Hip fracture [Not Recovered/Not Resolved]
  - Fall [Not Recovered/Not Resolved]
